FAERS Safety Report 7236005-5 (Version None)
Quarter: 2011Q1

REPORT INFORMATION
  Report Type: 
  Country: None (occurrence: None)
  Receive Date: 20110111
  Receipt Date: 20110104
  Transmission Date: 20110831
  Serious: Yes (Hospitalization)
  Sender: FDA-Public Use
  Company Number: 2010SP039400

PATIENT
  Age: 53 Year
  Sex: Female
  Weight: 61 kg

DRUGS (24)
  1. SODIUM CHLORIDE 0.9% [Concomitant]
  2. IBUPROFEN [Concomitant]
  3. TYLOX [Concomitant]
  4. CYCLOBENZAPRINE HYDROCHLORIDE [Concomitant]
  5. PROCHLORPERAZINE EDISYLATE [Concomitant]
  6. ONDANSETRON [Concomitant]
  7. GABAPENTIN [Concomitant]
  8. RANITIDINE [Concomitant]
  9. MORPHINE SULFATE [Concomitant]
  10. ABT-888 [Suspect]
     Indication: OVARIAN CANCER
     Dosage: 40 MG; QD; PO
     Route: 048
     Dates: start: 20100624, end: 20100629
  11. VICODIN [Concomitant]
  12. CIPROFLOXACIN LACTATE [Concomitant]
  13. DIPHENHYDRAMINE [Concomitant]
  14. DOCUSATE [Concomitant]
  15. LORAZEPAM [Concomitant]
  16. FONDAPARINUX SODIUM [Concomitant]
  17. MULTI-VITAMIN [Concomitant]
  18. OXYCODONE HCL [Concomitant]
  19. TEMOZOLOMIDE [Suspect]
     Indication: OVARIAN CANCER
     Dosage: 245 MG; QD; PO
     Route: 048
     Dates: start: 20100624, end: 20100629
  20. TRAZODONE HCL [Concomitant]
  21. CIPROFLOXACIN [Concomitant]
  22. BACTRIM [Concomitant]
  23. PROMETHAZINE [Concomitant]
  24. FLEBOBAG RING LACT [Concomitant]

REACTIONS (9)
  - THROMBOCYTOPENIA [None]
  - PETECHIAE [None]
  - NEUTROPENIA [None]
  - HEPATIC ENZYME INCREASED [None]
  - TOXICITY TO VARIOUS AGENTS [None]
  - DEHYDRATION [None]
  - URINARY TRACT INFECTION [None]
  - DIARRHOEA [None]
  - DIZZINESS [None]
